FAERS Safety Report 21382821 (Version 1)
Quarter: 2022Q3

REPORT INFORMATION
  Report Type: Spontaneous
  Country: US (occurrence: US)
  Receive Date: 20220927
  Receipt Date: 20220927
  Transmission Date: 20221026
  Serious: No
  Sender: FDA-Public Use
  Company Number: US-SA-SAC20220921001181

PATIENT
  Sex: Male

DRUGS (1)
  1. ELOCTATE [Suspect]
     Active Substance: (1-743)-(1638-2332)-BLOOD-COAGULATION FACTOR VIII (SYNTHETIC HUMAN) FUSION PROTEIN WITH IMMUNOGLOBUL
     Indication: Factor VIII deficiency
     Dosage: INFUSE 1500 UNITS (1350-1650) SLOW IV PUSH EVERY 7 DAYS ON FRIDAYS AND INFUSE 2000 UNITS (1800-2200)
     Route: 041
     Dates: start: 202205

REACTIONS (1)
  - Headache [Unknown]

NARRATIVE: CASE EVENT DATE: 20220101
